FAERS Safety Report 13540944 (Version 2)
Quarter: 2017Q2

REPORT INFORMATION
  Report Type: Report from Study
  Country: FR (occurrence: FR)
  Receive Date: 20170512
  Receipt Date: 20170619
  Transmission Date: 20170830
  Serious: Yes (Life-Threatening, Other)
  Sender: FDA-Public Use
  Company Number: PHHY2017FR069809

PATIENT
  Age: 57 Year
  Sex: Female
  Weight: 101 kg

DRUGS (11)
  1. COSENTYX [Suspect]
     Active Substance: SECUKINUMAB
     Indication: PSORIASIS
     Dosage: 300 MG, QW
     Route: 058
     Dates: start: 20161121
  2. HUMIRA [Suspect]
     Active Substance: ADALIMUMAB
     Dosage: 40 MG, QW
     Route: 058
     Dates: start: 20150821, end: 20150828
  3. HUMIRA [Suspect]
     Active Substance: ADALIMUMAB
     Dosage: 40 MG, UNK (TWICE A MONTH)
     Route: 058
     Dates: start: 20150904, end: 20151113
  4. METHOTREXATE. [Suspect]
     Active Substance: METHOTREXATE
     Indication: PSORIASIS
     Dosage: 25 MG, QD
     Route: 048
     Dates: start: 20101101, end: 20130701
  5. STELARA [Suspect]
     Active Substance: USTEKINUMAB
     Dosage: 45 MG, UNK (EVERY 3 MONTHS)
     Route: 058
     Dates: start: 20160215, end: 20160307
  6. COSENTYX [Suspect]
     Active Substance: SECUKINUMAB
     Dosage: 300 MG, QW
     Route: 058
     Dates: start: 20161201, end: 20161201
  7. HUMIRA [Suspect]
     Active Substance: ADALIMUMAB
     Indication: PSORIASIS
     Dosage: 80 MG, ONCE/SINGLE
     Route: 058
     Dates: start: 20150814, end: 20150814
  8. PROZAC [Concomitant]
     Active Substance: FLUOXETINE HYDROCHLORIDE
     Indication: PRODUCT USED FOR UNKNOWN INDICATION
     Dosage: UNK
     Route: 065
     Dates: start: 20140103
  9. STELARA [Suspect]
     Active Substance: USTEKINUMAB
     Dosage: 90 MG, UNK (EVERY 3 MONTHS)
     Route: 058
     Dates: start: 20160307
  10. STELARA [Suspect]
     Active Substance: USTEKINUMAB
     Indication: PSORIASIS
     Dosage: 45 MG, QMO (EVERY 4 WEEKS)
     Route: 058
     Dates: start: 20160118
  11. STELARA [Suspect]
     Active Substance: USTEKINUMAB
     Dosage: 90 MG, UNK
     Route: 058
     Dates: start: 20161101, end: 20161203

REACTIONS (1)
  - Breast cancer in situ [Unknown]

NARRATIVE: CASE EVENT DATE: 20161216
